FAERS Safety Report 8771521 (Version 1)
Quarter: 2012Q4

REPORT INFORMATION
  Report Type: 
  Country: DE (occurrence: DE)
  Receive Date: 20120906
  Receipt Date: 20120906
  Transmission Date: 20130627
  Serious: Yes (Death, Congenital Anomaly)
  Sender: FDA-Public Use
  Company Number: DE-GLAXOSMITHKLINE-D0076842B

PATIENT
  Sex: Male
  Weight: .1 kg

DRUGS (4)
  1. SUMATRIPTAN [Suspect]
     Indication: MIGRAINE
     Route: 064
     Dates: start: 20110609, end: 20111007
  2. FOLIC ACID [Concomitant]
     Indication: PROPHYLAXIS OF NEURAL TUBE DEFECT
     Route: 064
  3. IODINE [Concomitant]
     Indication: PROPHYLAXIS OF NEURAL TUBE DEFECT
     Route: 064
  4. ANALGESIC [Concomitant]
     Indication: MIGRAINE
     Route: 064

REACTIONS (3)
  - Renal aplasia [Fatal]
  - Potter^s syndrome [Unknown]
  - Foetal exposure during pregnancy [Unknown]
